FAERS Safety Report 7412064-1 (Version None)
Quarter: 2011Q2

REPORT INFORMATION
  Report Type: 
  Country: None (occurrence: None)
  Receive Date: 20110413
  Receipt Date: 20110404
  Transmission Date: 20111010
  Serious: Yes (Hospitalization)
  Sender: FDA-Public Use
  Company Number: US-ASTRAZENECA-2010SE56763

PATIENT
  Age: 60 Year
  Sex: Female
  Weight: 56.7 kg

DRUGS (26)
  1. SEROQUEL XR [Suspect]
     Route: 048
     Dates: start: 20101123, end: 20100101
  2. SEROQUEL XR [Suspect]
     Route: 048
     Dates: start: 20101101
  3. SEROQUEL XR [Suspect]
     Indication: BIPOLAR DISORDER
     Route: 048
     Dates: start: 20100901, end: 20101001
  4. SEROQUEL XR [Suspect]
     Route: 048
  5. SEROQUEL XR [Suspect]
     Route: 048
  6. SEROQUEL XR [Suspect]
     Route: 048
  7. ERSANDALL [Concomitant]
     Indication: INTESTINAL FUNCTIONAL DISORDER
  8. SEROQUEL XR [Suspect]
     Route: 048
     Dates: start: 20101101
  9. SEROQUEL XR [Suspect]
     Indication: ANXIETY
     Route: 048
     Dates: start: 20100901, end: 20101001
  10. SEROQUEL XR [Suspect]
     Indication: PANIC ATTACK
     Route: 048
     Dates: start: 20100901, end: 20101001
  11. SEROQUEL XR [Suspect]
     Route: 048
     Dates: start: 20101123, end: 20100101
  12. SEROQUEL XR [Suspect]
     Route: 048
     Dates: start: 20101101
  13. SEROQUEL XR [Suspect]
     Route: 048
  14. SEROQUEL XR [Suspect]
     Route: 048
     Dates: start: 20101123, end: 20100101
  15. SEROQUEL XR [Suspect]
     Route: 048
     Dates: start: 20101101
  16. SEROQUEL XR [Suspect]
     Route: 048
  17. SEROQUEL XR [Suspect]
     Indication: SLEEP DISORDER
     Route: 048
     Dates: start: 20100901, end: 20101001
  18. ABILIFY [Suspect]
     Route: 065
  19. SEROQUEL XR [Suspect]
     Route: 048
     Dates: start: 20101123, end: 20100101
  20. SEROQUEL XR [Suspect]
     Route: 048
  21. SEROQUEL XR [Suspect]
     Route: 048
  22. SEROQUEL XR [Suspect]
     Route: 048
  23. SEROQUEL XR [Suspect]
     Route: 048
  24. SEROQUEL XR [Suspect]
     Route: 048
  25. SEROQUEL XR [Suspect]
     Route: 048
  26. SEROQUEL XR [Suspect]
     Route: 048

REACTIONS (13)
  - GALLBLADDER DISORDER [None]
  - PANIC ATTACK [None]
  - OFF LABEL USE [None]
  - WEIGHT INCREASED [None]
  - DRUG DOSE OMISSION [None]
  - SLEEP-RELATED EATING DISORDER [None]
  - PANCREATITIS RELAPSING [None]
  - ENURESIS [None]
  - INCREASED APPETITE [None]
  - SOMNOLENCE [None]
  - VISION BLURRED [None]
  - WRONG TECHNIQUE IN DRUG USAGE PROCESS [None]
  - ASTHENIA [None]
